FAERS Safety Report 14288355 (Version 1)
Quarter: 2017Q4

REPORT INFORMATION
  Report Type: Spontaneous
  Country: US (occurrence: US)
  Receive Date: 20171215
  Receipt Date: 20171215
  Transmission Date: 20180321
  Serious: No
  Sender: FDA-Public Use
  Company Number: US-TEVA-822755ACC

PATIENT
  Age: 51 Year
  Sex: Male

DRUGS (5)
  1. MUCUS ER [Suspect]
     Active Substance: GUAIFENESIN
     Indication: COUGH
     Dosage: DAILY DOSE: 2400 MG, SINGLE
     Route: 048
     Dates: start: 20171027, end: 20171027
  2. GLIPIZIDE. [Concomitant]
     Active Substance: GLIPIZIDE
  3. PRAVASTATIN. [Concomitant]
     Active Substance: PRAVASTATIN
  4. LISINOPRIL. [Concomitant]
     Active Substance: LISINOPRIL
  5. METFORMIN [Concomitant]
     Active Substance: METFORMIN HYDROCHLORIDE

REACTIONS (2)
  - Incorrect dose administered [Unknown]
  - Headache [Unknown]
